FAERS Safety Report 9275325 (Version 2)
Quarter: 2013Q4

REPORT INFORMATION
  Report Type: Spontaneous
  Country: US (occurrence: US)
  Receive Date: 20130507
  Receipt Date: 20131111
  Transmission Date: 20140711
  Serious: Yes (Hospitalization, Other)
  Sender: FDA-Public Use
  Company Number: US-BAYER-2013-054477

PATIENT
  Age: 40 Year
  Sex: Female

DRUGS (19)
  1. MIRENA [Suspect]
     Dosage: 20 MCG/24HR, CONT
     Route: 015
  2. MELOXICAM [Concomitant]
  3. GABAPENTIN [Concomitant]
  4. METOPROLOL [Concomitant]
  5. AMPICILLIN [Concomitant]
  6. PHENERGAN [Concomitant]
  7. XANAX [Concomitant]
  8. BACLOFEN [Concomitant]
  9. PANTOPRAZOLE [Concomitant]
  10. METFORMIN [Concomitant]
  11. CYMBALTA [Concomitant]
  12. TRAZODONE [Concomitant]
  13. VICTOZA [Concomitant]
  14. VENTOLIN HFA [Concomitant]
  15. FLUTICASONE PROPIONATE [Concomitant]
  16. GLIPIZIDE XL [Concomitant]
  17. BUTALBITAL W/ASPIRIN,CAFFEINE [Concomitant]
  18. PERCOCET [Concomitant]
  19. PROMETHAZINE HYDROCHLORIDE [Concomitant]

REACTIONS (12)
  - Device dislocation [None]
  - Injury [None]
  - Pain [None]
  - Emotional distress [None]
  - Fear of disease [None]
  - Uterine injury [None]
  - Procedural haemorrhage [None]
  - Genital haemorrhage [None]
  - Depression [None]
  - Anxiety [None]
  - Stress [None]
  - Medication error [None]
